FAERS Safety Report 8152224-8 (Version None)
Quarter: 2012Q1

REPORT INFORMATION
  Report Type: 
  Country: None (occurrence: None)
  Receive Date: 20120214
  Receipt Date: 20120203
  Transmission Date: 20120608
  Serious: Yes (Other)
  Sender: FDA-Public Use
  Company Number: WAES1003USA00780

PATIENT
  Age: 65 Year
  Sex: Female
  Weight: 65.7716 kg

DRUGS (11)
  1. ISOSORBIDE MONONITRATE [Concomitant]
  2. PLACEBO [Suspect]
     Indication: ACUTE CORONARY SYNDROME
     Dosage: PO
     Route: 048
  3. PLACEBO [Suspect]
     Indication: ACUTE CORONARY SYNDROME
     Dosage: PO
     Route: 048
     Dates: start: 20090701, end: 20110801
  4. BISOPROLOL FUMARATE [Concomitant]
  5. VYTORIN [Suspect]
     Indication: ACUTE CORONARY SYNDROME
     Dosage: 10-40 MG/DAILY/PO
     Route: 048
     Dates: start: 20090701, end: 20110801
  6. ASPIRIN [Concomitant]
  7. HYDROXYUREA [Concomitant]
  8. QUININE SULFATE [Concomitant]
  9. LANSOPRAZOLE [Concomitant]
  10. RAMIPRIL [Concomitant]
  11. WARFARIN SODIUM [Concomitant]

REACTIONS (2)
  - SQUAMOUS CELL CARCINOMA [None]
  - HAEMOGLOBIN DECREASED [None]
